FAERS Safety Report 9844009 (Version 1)
Quarter: 2013Q4

REPORT INFORMATION
  Report Type: Spontaneous
  Country: US (occurrence: None)
  Receive Date: 20131223
  Receipt Date: 20131223
  Transmission Date: 20140711
  Serious: No
  Sender: FDA-Public Use
  Company Number: 1000048469

PATIENT
  Age: 46 Year
  Sex: Male

DRUGS (4)
  1. LINZESS (LINACLOTIDE) (145 MICROGRAM, CAPSULES) [Suspect]
     Indication: CONSTIPATION
     Route: 048
     Dates: start: 20130906
  2. ANTIDEPRESSANT (NOS) (ANTIDEPRESSANT NOS)) [Concomitant]
  3. ANXIETY PILL (NOS) (ANXIETY PILL (NOS)) [Concomitant]
  4. PROZAC (FLUOXETINE HYDROCHLORIDE) (FLUOXETINE HYDROCHLORIDE) [Concomitant]

REACTIONS (1)
  - Diarrhoea [None]
